FAERS Safety Report 5012342-X (Version None)
Quarter: 2006Q2

REPORT INFORMATION
  Report Type: 
  Country: None (occurrence: None)
  Receive Date: 20060525
  Receipt Date: 20060525
  Transmission Date: 20061013
  Serious: Yes (Hospitalization)
  Sender: FDA-Public Use
  Company Number: None

PATIENT
  Sex: Female
  Weight: 66.2252 kg

DRUGS (1)
  1. FLEETS PHOSPHASODA [Suspect]
     Indication: COLONOSCOPY
     Dosage: 3OZ   PM, AM,  3OZ ENEMA    PO
     Route: 048
     Dates: start: 20030109, end: 20030110

REACTIONS (5)
  - ANAEMIA [None]
  - DEPRESSION [None]
  - DRUG TOXICITY [None]
  - RENAL DISORDER [None]
  - RENAL FAILURE ACUTE [None]
